FAERS Safety Report 13385349 (Version 1)
Quarter: 2017Q1

REPORT INFORMATION
  Report Type: Spontaneous
  Country: FR (occurrence: FR)
  Receive Date: 20170330
  Receipt Date: 20170330
  Transmission Date: 20170429
  Serious: Yes (Life-Threatening)
  Sender: FDA-Public Use
  Company Number: FR-SA-2017SA051385

PATIENT
  Age: 70 Year
  Sex: Female

DRUGS (1)
  1. LOVENOX [Suspect]
     Active Substance: ENOXAPARIN SODIUM
     Indication: HAEMODIALYSIS
     Route: 042
     Dates: start: 20170119, end: 20170215

REACTIONS (4)
  - Cardio-respiratory arrest [Not Recovered/Not Resolved]
  - Wound necrosis [Not Recovered/Not Resolved]
  - Heparin-induced thrombocytopenia [Not Recovered/Not Resolved]
  - Dyspnoea [Not Recovered/Not Resolved]

NARRATIVE: CASE EVENT DATE: 20170213
